FAERS Safety Report 7965866-7 (Version None)
Quarter: 2011Q4

REPORT INFORMATION
  Report Type: 
  Country: None (occurrence: None)
  Receive Date: 20111208
  Receipt Date: 20111130
  Transmission Date: 20120403
  Serious: Yes (Hospitalization)
  Sender: FDA-Public Use
  Company Number: US-GLAXOSMITHKLINE-A0894418A

PATIENT
  Sex: Male

DRUGS (1)
  1. AVANDIA [Suspect]
     Indication: TYPE 2 DIABETES MELLITUS
     Route: 048

REACTIONS (4)
  - CAROTID ARTERY STENOSIS [None]
  - CORONARY ARTERY DISEASE [None]
  - TRANSIENT ISCHAEMIC ATTACK [None]
  - CEREBROVASCULAR ACCIDENT [None]
